FAERS Safety Report 6372479-X (Version None)
Quarter: 2009Q3

REPORT INFORMATION
  Report Type: 
  Country: None (occurrence: None)
  Receive Date: 20090924
  Receipt Date: 20081006
  Transmission Date: 20100115
  Serious: No
  Sender: FDA-Public Use
  Company Number: US-ASTRAZENECA-2008UW16593

PATIENT
  Age: 34 Year
  Sex: Female
  Weight: 62.6 kg

DRUGS (10)
  1. SEROQUEL [Suspect]
     Indication: BIPOLAR DISORDER
     Route: 048
     Dates: start: 20080301
  2. SEROQUEL [Suspect]
     Indication: TACHYPHRENIA
     Route: 048
     Dates: start: 20080301
  3. SEROQUEL [Suspect]
     Dosage: 125 MG
     Route: 048
     Dates: start: 20080811
  4. SEROQUEL [Suspect]
     Dosage: 125 MG
     Route: 048
     Dates: start: 20080811
  5. SEROQUEL [Suspect]
     Route: 048
  6. SEROQUEL [Suspect]
     Route: 048
  7. SEROQUEL [Suspect]
     Route: 048
  8. SEROQUEL [Suspect]
     Route: 048
  9. LAMICTAL [Concomitant]
  10. LEXAPRO [Concomitant]

REACTIONS (11)
  - ABNORMAL DREAMS [None]
  - DECREASED APPETITE [None]
  - DRUG INEFFECTIVE [None]
  - DRY MOUTH [None]
  - DYSPEPSIA [None]
  - GLOSSODYNIA [None]
  - ILL-DEFINED DISORDER [None]
  - MYALGIA [None]
  - TACHYPHRENIA [None]
  - TONGUE EXFOLIATION [None]
  - WEIGHT LOSS POOR [None]
